FAERS Safety Report 7222004-6 (Version None)
Quarter: 2011Q1

REPORT INFORMATION
  Report Type: 
  Country: None (occurrence: None)
  Receive Date: 20110112
  Receipt Date: 20110107
  Transmission Date: 20110831
  Serious: Yes (Death)
  Sender: FDA-Public Use
  Company Number: JP-SANOFI-AVENTIS-2011SA001167

PATIENT
  Age: 78 Year
  Sex: Male
  Weight: 47.9 kg

DRUGS (12)
  1. ELPLAT [Suspect]
     Route: 042
     Dates: start: 20100921, end: 20100921
  2. TS-1 [Suspect]
     Indication: PANCREATIC CARCINOMA
     Route: 048
     Dates: start: 20100629
  3. TS-1 [Suspect]
     Route: 048
     Dates: start: 20100720
  4. TS-1 [Suspect]
     Route: 048
     Dates: start: 20100921, end: 20101005
  5. TS-1 [Suspect]
     Route: 048
     Dates: start: 20100810
  6. PARIET [Concomitant]
     Route: 048
     Dates: start: 20090101
  7. GASCON [Concomitant]
     Route: 048
     Dates: start: 20100629
  8. LOPERAMIDE [Concomitant]
     Route: 048
     Dates: start: 20100720
  9. ELPLAT [Suspect]
     Indication: PANCREATIC CARCINOMA
     Route: 042
     Dates: start: 20100629, end: 20100629
  10. BIO THREE [Concomitant]
     Route: 048
     Dates: start: 20100506
  11. GASMOTIN [Concomitant]
     Route: 048
     Dates: start: 20090101
  12. TS-1 [Suspect]
     Route: 048
     Dates: start: 20100831

REACTIONS (1)
  - PERITONITIS BACTERIAL [None]
